FAERS Safety Report 19734593 (Version 1)
Quarter: 2021Q3

REPORT INFORMATION
  Report Type: Other
  Country: IL (occurrence: IL)
  Receive Date: 20210824
  Receipt Date: 20210824
  Transmission Date: 20211014
  Serious: Yes (Other)
  Sender: FDA-Public Use
  Company Number: IL-ROCHE-2659361

PATIENT

DRUGS (4)
  1. MYCOPHENOLATE MOFETIL. [Suspect]
     Active Substance: MYCOPHENOLATE MOFETIL
     Indication: PEMPHIGUS
     Route: 065
  2. RITUXIMAB. [Suspect]
     Active Substance: RITUXIMAB
     Indication: PEMPHIGUS
     Dosage: ^RHEUMATOID ARTHRITIS DOSAGE^ (2 RITUXIMAB INFUSIONS AT A DOSE OF 1,000 MG ON DAYS 1 AND 15) OR AT T
     Route: 041
  3. PREDNISONE. [Suspect]
     Active Substance: PREDNISONE
     Indication: PEMPHIGUS
     Route: 065
  4. AZATHIOPRINE. [Suspect]
     Active Substance: AZATHIOPRINE
     Indication: PEMPHIGUS
     Route: 065

REACTIONS (23)
  - Hyperglycaemia [Unknown]
  - Acne [Unknown]
  - Cataract [Unknown]
  - Fatigue [Unknown]
  - Obesity [Unknown]
  - Gastritis [Unknown]
  - Meningitis [Unknown]
  - Myopathy [Unknown]
  - Hypertension [Unknown]
  - Hyperlipidaemia [Unknown]
  - Headache [Unknown]
  - Papilloma viral infection [Unknown]
  - Off label use [Unknown]
  - Osteoporosis [Unknown]
  - Mood altered [Unknown]
  - Anal abscess [Unknown]
  - Skin infection [Unknown]
  - Candida infection [Unknown]
  - Muscle atrophy [Unknown]
  - Hirsutism [Unknown]
  - Glaucoma [Unknown]
  - Cushing^s syndrome [Unknown]
  - Insomnia [Unknown]
